FAERS Safety Report 14424374 (Version 1)
Quarter: 2018Q1

REPORT INFORMATION
  Report Type: Spontaneous
  Country: DE (occurrence: DE)
  Receive Date: 20180123
  Receipt Date: 20180123
  Transmission Date: 20180509
  Serious: Yes (Other)
  Sender: FDA-Public Use
  Company Number: DE-ASTRAZENECA-2018SE07514

PATIENT
  Age: 1 Day
  Sex: Male
  Weight: 3.1 kg

DRUGS (4)
  1. QUILONORM RETARD [Suspect]
     Active Substance: LITHIUM CARBONATE
     Indication: BIPOLAR DISORDER
     Dosage: 1125 [MG/D ]/ FROM GESTATIONAL WEEK 7 6/7 DOSAGE INCREASE FROM 900 MG TO 1125 MG/D.
     Route: 064
     Dates: start: 20160924, end: 20170614
  2. THYRONAJOD [Concomitant]
     Active Substance: LEVOTHYROXINE SODIUM\POTASSIUM IODIDE
     Indication: HYPOTHYROIDISM
     Dosage: 50 [???G/D ] / 196 [???G/D ]
     Route: 064
  3. SEROQUEL [Suspect]
     Active Substance: QUETIAPINE FUMARATE
     Indication: BIPOLAR DISORDER
     Dosage: 600 [MG/D ]/ RETARD, 200-0-400 MG/D
     Route: 064
     Dates: start: 20160924, end: 20170614
  4. FOLIC ACID. [Concomitant]
     Active Substance: FOLIC ACID
     Indication: PROPHYLAXIS OF NEURAL TUBE DEFECT
     Dosage: 0.8 [MG/D ]
     Route: 064

REACTIONS (2)
  - Foetal exposure during pregnancy [Unknown]
  - Infantile apnoea [Recovered/Resolved]

NARRATIVE: CASE EVENT DATE: 20170614
